FAERS Safety Report 13399968 (Version 1)
Quarter: 2017Q2

REPORT INFORMATION
  Report Type: Spontaneous
  Country: SE (occurrence: SE)
  Receive Date: 20170404
  Receipt Date: 20170404
  Transmission Date: 20170830
  Serious: Yes (Other)
  Sender: FDA-Public Use
  Company Number: SE-ACCORD-049807

PATIENT
  Age: 70 Year
  Sex: Female

DRUGS (17)
  1. LETROZOL ACCORD [Suspect]
     Active Substance: LETROZOLE
     Indication: BREAST CANCER
  2. VALTREX [Concomitant]
     Active Substance: VALACYCLOVIR HYDROCHLORIDE
  3. COZAAR [Concomitant]
     Active Substance: LOSARTAN POTASSIUM
  4. METOPROLOL TARTRATE. [Concomitant]
     Active Substance: METOPROLOL TARTRATE
  5. PRIMPERAN [Concomitant]
     Active Substance: METOCLOPRAMIDE HYDROCHLORIDE
  6. HERCEPTIN [Suspect]
     Active Substance: TRASTUZUMAB
     Indication: BREAST CANCER
  7. AMLODIPINE [Concomitant]
     Active Substance: AMLODIPINE BESYLATE
  8. TROMBYL [Concomitant]
     Active Substance: ASPIRIN
  9. NEXIUM [Concomitant]
     Active Substance: ESOMEPRAZOLE MAGNESIUM
  10. MORFIN MEDA [Concomitant]
     Active Substance: MORPHINE SULFATE
  11. LEVAXIN [Concomitant]
     Active Substance: LEVOTHYROXINE SODIUM
  12. GAVISCON [Concomitant]
     Active Substance: ALUMINUM HYDROXIDE\MAGNESIUM CARBONATE
  13. CALCICHEW-D3 [Concomitant]
     Active Substance: CALCIUM\CHOLECALCIFEROL
  14. ALVEDON [Concomitant]
     Active Substance: ACETAMINOPHEN
  15. DIKLOFENAK ORIFARM [Concomitant]
  16. ZOMETA [Suspect]
     Active Substance: ZOLEDRONIC ACID
     Indication: BREAST CANCER
  17. DOXYFERM [Concomitant]
     Active Substance: DOXYCYCLINE

REACTIONS (3)
  - Haemoglobin decreased [Unknown]
  - Leukopenia [Unknown]
  - Neutropenia [Recovered/Resolved]

NARRATIVE: CASE EVENT DATE: 20150324
